FAERS Safety Report 8277037 (Version 2)
Quarter: 2012Q4

REPORT INFORMATION
  Report Type: 
  Country: TW (occurrence: TW)
  Receive Date: 20111206
  Receipt Date: 20121123
  Transmission Date: 20130627
  Serious: Yes (Death, Hospitalization, Disabling)
  Sender: FDA-Public Use
  Company Number: PHHO2010TW13149

PATIENT
  Age: 63 Year
  Sex: Male
  Weight: 60 kg

DRUGS (9)
  1. AFINITOR [Suspect]
     Indication: METASTATIC GASTRIC CANCER
     Dosage: No treatment
     Dates: end: 20100902
  2. AFINITOR [Suspect]
     Dosage: 10 mg, QD
     Route: 048
     Dates: start: 20100903, end: 20101023
  3. SIMETHICONE [Concomitant]
     Indication: PROPHYLAXIS
     Dosage: UNK
  4. TAMSULOSIN [Concomitant]
     Indication: BENIGN PROSTATIC HYPERPLASIA
     Dosage: UNK
  5. ACERDIL [Concomitant]
  6. ISOSORBIDE MONONITRATE [Concomitant]
     Indication: ATRIAL FIBRILLATION
  7. PERINDOPRIL [Concomitant]
     Indication: HYPERTENSION
     Dosage: UNK
  8. CARBOCISTEINE [Concomitant]
     Indication: COUGH
  9. FEXOFENADINE [Concomitant]

REACTIONS (10)
  - Septic shock [Fatal]
  - Pulmonary oedema [Fatal]
  - Renal failure acute [Fatal]
  - Cardiac arrest [Fatal]
  - Hypotension [Fatal]
  - Acinetobacter infection [Fatal]
  - Thrombocytopenia [Not Recovered/Not Resolved]
  - Pyrexia [Not Recovered/Not Resolved]
  - Asthenia [Not Recovered/Not Resolved]
  - Epistaxis [Not Recovered/Not Resolved]
